FAERS Safety Report 10690185 (Version 3)
Quarter: 2015Q1

REPORT INFORMATION
  Report Type: Spontaneous
  Country: US (occurrence: US)
  Receive Date: 20150105
  Receipt Date: 20150303
  Transmission Date: 20150720
  Serious: Yes (Death, Hospitalization, Other)
  Sender: FDA-Public Use
  Company Number: US-MERCK-1412USA013722

PATIENT
  Sex: Female
  Weight: 60.6 kg

DRUGS (3)
  1. MORPHINE [Concomitant]
     Active Substance: MORPHINE
  2. ATIVAN [Concomitant]
     Active Substance: LORAZEPAM
  3. NOXAFIL [Suspect]
     Active Substance: POSACONAZOLE
     Indication: PRODUCT USED FOR UNKNOWN INDICATION
     Dosage: 100 MG, UNK
     Route: 048

REACTIONS (16)
  - Acute kidney injury [Recovering/Resolving]
  - Pleural effusion [Unknown]
  - Oedema peripheral [Unknown]
  - Febrile neutropenia [Not Recovered/Not Resolved]
  - Myelodysplastic syndrome [Unknown]
  - Restrictive cardiomyopathy [Unknown]
  - Back pain [Unknown]
  - Acute myelomonocytic leukaemia [Fatal]
  - Mental status changes [Unknown]
  - Fall [Unknown]
  - Respiratory tract infection fungal [Unknown]
  - Chills [Unknown]
  - Decreased appetite [Unknown]
  - Cytopenia [Not Recovered/Not Resolved]
  - Acute monocytic leukaemia [Not Recovered/Not Resolved]
  - Haemochromatosis [Unknown]

NARRATIVE: CASE EVENT DATE: 2014
